FAERS Safety Report 19636877 (Version 1)
Quarter: 2021Q3

REPORT INFORMATION
  Report Type: Spontaneous
  Country: US (occurrence: US)
  Receive Date: 20210730
  Receipt Date: 20210730
  Transmission Date: 20211014
  Serious: Yes (Other)
  Sender: FDA-Public Use
  Company Number: US-FOUNDATIONCB-2021-US-016457

PATIENT
  Age: 86 Year
  Sex: Female

DRUGS (13)
  1. PRESERVISION [Concomitant]
     Active Substance: MINERALS\VITAMINS
     Dosage: 2 DAILY
  2. MELATONIN [Concomitant]
     Active Substance: MELATONIN
     Dosage: 10 MG DAILY AT BEDTIME
  3. TRAMADOL. [Suspect]
     Active Substance: TRAMADOL
     Indication: PAIN
     Dosage: 50 MG 3 TIMES DAILY AS NEEDED
     Route: 048
  4. METOPROLOL. [Concomitant]
     Active Substance: METOPROLOL
     Dosage: 50 MG DAILY
  5. ALAVERT ALLERGY [Suspect]
     Active Substance: LORATADINE
     Indication: PRODUCT USED FOR UNKNOWN INDICATION
     Dosage: 10 MG DAILY
  6. DONEPEZIL. [Suspect]
     Active Substance: DONEPEZIL
     Indication: PRODUCT USED FOR UNKNOWN INDICATION
     Dosage: 5 MG DAILY
  7. LISINOPRIL. [Concomitant]
     Active Substance: LISINOPRIL
     Dosage: 5 MG DAILY
  8. POTASSIUM CHLORIDE. [Suspect]
     Active Substance: POTASSIUM CHLORIDE
     Indication: HYPOKALAEMIA
     Dosage: 40 MEQ ONCE DAILY
  9. TRAZODONE [Suspect]
     Active Substance: TRAZODONE HYDROCHLORIDE
     Indication: PRODUCT USED FOR UNKNOWN INDICATION
     Dosage: 100 MG DAILY
  10. ACETAMINOPHEN. [Concomitant]
     Active Substance: ACETAMINOPHEN
  11. LIDOCAINE PATCH [Concomitant]
     Active Substance: LIDOCAINE
  12. APIXABAN [Concomitant]
     Active Substance: APIXABAN
     Dosage: 2.5 MG TWICE DAILY
  13. SIMETHICONE (DIMETHICONE) [Concomitant]
     Active Substance: DIMETHICONE
     Dosage: 80 MG 3 TIMES DAILY

REACTIONS (4)
  - Cognitive disorder [Recovered/Resolved]
  - Fall [Recovered/Resolved]
  - Delirium [Recovered/Resolved]
  - Drug interaction [Unknown]
